FAERS Safety Report 5341491-1 (Version None)
Quarter: 2007Q2

REPORT INFORMATION
  Report Type: 
  Country: None (occurrence: None)
  Receive Date: 20070601
  Receipt Date: 20070524
  Transmission Date: 20071010
  Serious: Yes (Hospitalization, Other)
  Sender: FDA-Public Use
  Company Number: PHMT2007CA01201

PATIENT
  Sex: Male

DRUGS (2)
  1. EXJADE [Suspect]
     Indication: IRON OVERLOAD
     Dosage: 1000 MG, UNK
     Route: 048
     Dates: start: 20070501, end: 20070524
  2. TISSUE PLASMINOGEN ACTIVATOR, RECOMBINATIVE [Suspect]

REACTIONS (6)
  - APHASIA [None]
  - CATHETERISATION CARDIAC [None]
  - CATHETERISATION VENOUS [None]
  - CEREBROVASCULAR ACCIDENT [None]
  - CHROMATURIA [None]
  - HEART VALVE OPERATION [None]
